FAERS Safety Report 16168416 (Version 1)
Quarter: 2019Q2

REPORT INFORMATION
  Report Type: Report from Study
  Country: US (occurrence: US)
  Receive Date: 20190408
  Receipt Date: 20190408
  Transmission Date: 20190711
  Serious: Yes (Other)
  Sender: FDA-Public Use
  Company Number: US-BAUSCH-BL-2019-006269

PATIENT
  Age: 70 Year
  Sex: Female
  Weight: 76.73 kg

DRUGS (6)
  1. IRBESARTAN/HYDROCHLOROTHIAZIDE [Concomitant]
     Active Substance: HYDROCHLOROTHIAZIDE\IRBESARTAN
     Indication: PRODUCT USED FOR UNKNOWN INDICATION
     Dosage: 300 MG/12.5 MG
     Route: 048
  2. CITALOPRAM [Concomitant]
     Active Substance: CITALOPRAM HYDROBROMIDE
     Indication: PRODUCT USED FOR UNKNOWN INDICATION
     Route: 048
  3. AMLODIPINE [Concomitant]
     Active Substance: AMLODIPINE BESYLATE
     Indication: PRODUCT USED FOR UNKNOWN INDICATION
     Route: 048
  4. OXSORALEN-ULTRA [Suspect]
     Active Substance: METHOXSALEN
     Indication: CUTANEOUS T-CELL LYMPHOMA
     Dosage: ONE AND A HALF HOURS BEFORE ENTERING THE ULTRAVIOLET B (UVB) BOX
     Route: 048
     Dates: start: 2007
  5. OXSORALEN-ULTRA [Suspect]
     Active Substance: METHOXSALEN
     Indication: PRODUCT USE IN UNAPPROVED INDICATION
     Dosage: EVERY MONDAY AND THURSDAY, ONE AND A HALF HOURS BEFORE ENTERING THE ULTRAVIOLET B (UVB) BOX
     Route: 048
     Dates: start: 201902, end: 20190322
  6. WARFARIN [Concomitant]
     Active Substance: WARFARIN
     Indication: PRODUCT USED FOR UNKNOWN INDICATION
     Route: 048

REACTIONS (7)
  - Condition aggravated [Not Recovered/Not Resolved]
  - Product use in unapproved indication [Unknown]
  - Rash macular [Recovering/Resolving]
  - Pruritus [Recovering/Resolving]
  - Cutaneous T-cell lymphoma [Not Recovered/Not Resolved]
  - Skin discolouration [Recovering/Resolving]
  - Therapy cessation [Unknown]

NARRATIVE: CASE EVENT DATE: 2007
